FAERS Safety Report 5330352-X (Version None)
Quarter: 2007Q2

REPORT INFORMATION
  Report Type: 
  Country: None (occurrence: None)
  Receive Date: 20070521
  Receipt Date: 20070510
  Transmission Date: 20071010
  Serious: Yes (Other)
  Sender: FDA-Public Use
  Company Number: CH-PFIZER INC-2006108998

PATIENT

DRUGS (6)
  1. NORVASC [Suspect]
     Indication: HYPERTENSION
     Route: 048
     Dates: start: 20060101, end: 20060908
  2. NORVASC [Suspect]
  3. MICARDIS [Suspect]
     Indication: HYPERTENSION
     Dosage: FREQ:DAILY: EVERY DAY
     Route: 048
  4. ATENOLOL [Suspect]
     Indication: HYPERTENSION
     Route: 048
  5. NIFEDIPINE [Suspect]
     Indication: HYPERTENSION
     Route: 048
  6. METOPROLOL SUCCINATE [Suspect]
     Indication: HYPERTENSION
     Route: 048

REACTIONS (2)
  - CHORIOAMNIONITIS [None]
  - DRUG EXPOSURE DURING PREGNANCY [None]
